FAERS Safety Report 13553492 (Version 1)
Quarter: 2017Q2

REPORT INFORMATION
  Report Type: Spontaneous
  Country: US (occurrence: US)
  Receive Date: 20170517
  Receipt Date: 20170517
  Transmission Date: 20170830
  Serious: No
  Sender: FDA-Public Use
  Company Number: US-BAYER-2017-083540

PATIENT
  Sex: Female

DRUGS (1)
  1. ALEVE [Suspect]
     Active Substance: NAPROXEN SODIUM
     Indication: PAIN
     Dosage: 1-2 TABLET, PRN
     Route: 048

REACTIONS (4)
  - Foreign body [Recovered/Resolved]
  - Expired product administered [Unknown]
  - Allergic reaction to excipient [Unknown]
  - Oropharyngeal pain [Recovered/Resolved]
